FAERS Safety Report 20754271 (Version 1)
Quarter: 2022Q2

REPORT INFORMATION
  Report Type: Spontaneous
  Country: US (occurrence: None)
  Receive Date: 20220426
  Receipt Date: 20220426
  Transmission Date: 20220720
  Serious: No
  Sender: FDA-Public Use
  Company Number: US-ROCHE-3027395

PATIENT
  Age: 70 Year
  Sex: Male

DRUGS (2)
  1. ESBRIET [Suspect]
     Active Substance: PIRFENIDONE
     Indication: Pulmonary fibrosis
     Dosage: 3 TIMES DAILY BY MOUTH
     Route: 048
     Dates: start: 202105
  2. ESBRIET [Suspect]
     Active Substance: PIRFENIDONE
     Dosage: 3 TIMES DAILY BY MOUTH
     Route: 048

REACTIONS (2)
  - Diarrhoea [Unknown]
  - Muscle spasms [Unknown]

NARRATIVE: CASE EVENT DATE: 20210701
